FAERS Safety Report 9225571 (Version 1)
Quarter: 2013Q1

REPORT INFORMATION
  Report Type: Spontaneous
  Country: US (occurrence: None)
  Receive Date: 20120912
  Receipt Date: 20120912
  Transmission Date: 20140127
  Serious: No
  Sender: FDA-Public Use
  Company Number: 2012SP029648

PATIENT
  Age: 55 Year
  Sex: Male

DRUGS (2)
  1. SAPHRIS [Suspect]
     Indication: SCHIZOAFFECTIVE DISORDER
     Route: 060
     Dates: start: 201205
  2. LATUDA [Concomitant]

REACTIONS (2)
  - Back pain [None]
  - Off label use [None]
